FAERS Safety Report 15169807 (Version 1)
Quarter: 2018Q3

REPORT INFORMATION
  Report Type: Report from Study
  Country: ES (occurrence: ES)
  Receive Date: 20180720
  Receipt Date: 20180720
  Transmission Date: 20181010
  Serious: Yes (Life-Threatening, Hospitalization)
  Sender: FDA-Public Use
  Company Number: ES-TEVA-2018-ES-926783

PATIENT
  Age: 50 Year
  Sex: Male

DRUGS (2)
  1. MELOXICAM (7153A) [Interacting]
     Active Substance: MELOXICAM
     Indication: FASCIITIS
     Route: 048
     Dates: start: 20160719, end: 20160721
  2. IBUPROFEN. [Suspect]
     Active Substance: IBUPROFEN
     Indication: FASCIITIS
     Route: 048
     Dates: start: 20160719, end: 20160721

REACTIONS (3)
  - Gastrointestinal haemorrhage [Recovered/Resolved]
  - Drug interaction [Recovered/Resolved]
  - Gastric ulcer [Recovered/Resolved]

NARRATIVE: CASE EVENT DATE: 20160721
